FAERS Safety Report 6692934-2 (Version None)
Quarter: 2010Q2

REPORT INFORMATION
  Report Type: 
  Country: None (occurrence: None)
  Receive Date: 20100419
  Receipt Date: 20100329
  Transmission Date: 20101027
  Serious: Yes (Death, Hospitalization)
  Sender: FDA-Public Use
  Company Number: 220001N10ESP

PATIENT
  Age: 5 Year
  Sex: Male

DRUGS (1)
  1. SAIZEN [Suspect]
     Indication: BLOOD GROWTH HORMONE
     Dosage: 7 IN 1 WK, SUBCUTANEOUS
     Route: 058
     Dates: start: 20080402, end: 20081211

REACTIONS (4)
  - COAGULOPATHY [None]
  - NEPHROTIC SYNDROME [None]
  - RENAL FAILURE ACUTE [None]
  - RESPIRATORY FAILURE [None]
